FAERS Safety Report 13424663 (Version 1)
Quarter: 2017Q2

REPORT INFORMATION
  Report Type: Report from Study
  Country: None (occurrence: CA)
  Receive Date: 20170410
  Receipt Date: 20170410
  Transmission Date: 20170830
  Serious: Yes (Death, Other)
  Sender: FDA-Public Use
  Company Number: CA-ABBVIE-17P-028-1935513-00

PATIENT
  Sex: Male
  Weight: 47.67 kg

DRUGS (2)
  1. LUPRON DEPOT [Suspect]
     Active Substance: LEUPROLIDE ACETATE
     Indication: PROSTATE CANCER
     Route: 030
     Dates: start: 20170103, end: 20170103
  2. CASODEX [Concomitant]
     Active Substance: BICALUTAMIDE
     Indication: PROSTATE CANCER

REACTIONS (6)
  - Urinary tract infection [Unknown]
  - Prostate cancer [Fatal]
  - Nausea [Unknown]
  - Condition aggravated [Fatal]
  - Fatigue [Unknown]
  - Decreased appetite [Unknown]
